FAERS Safety Report 8184171-X (Version None)
Quarter: 2012Q1

REPORT INFORMATION
  Report Type: 
  Country: None (occurrence: None)
  Receive Date: 20120305
  Receipt Date: 20120217
  Transmission Date: 20120608
  Serious: Yes (Hospitalization)
  Sender: FDA-Public Use
  Company Number: JP-ROCHE-1040480

PATIENT
  Sex: Female

DRUGS (8)
  1. VALGANCICLOVIR [Suspect]
     Indication: CYTOMEGALOVIRUS VIRAEMIA
     Route: 048
     Dates: start: 20101225, end: 20101229
  2. NEORAL [Concomitant]
     Route: 048
     Dates: start: 20101012
  3. GANCICLOVIR [Suspect]
     Indication: CYTOMEGALOVIRUS VIRAEMIA
     Route: 042
  4. MYCOPHENOLATE MOFETIL (CELLCEPT) [Concomitant]
     Route: 048
     Dates: start: 20101012
  5. COTRIM [Concomitant]
     Route: 048
     Dates: start: 20101012
  6. FAMOTIDINE [Concomitant]
     Route: 048
     Dates: start: 20101012
  7. VALGANCICLOVIR [Suspect]
     Dates: start: 20110107, end: 20110131
  8. TOMIRON [Concomitant]
     Dates: start: 20101012

REACTIONS (2)
  - FEBRILE NEUTROPENIA [None]
  - BONE MARROW FAILURE [None]
